FAERS Safety Report 12640528 (Version 7)
Quarter: 2017Q1

REPORT INFORMATION
  Report Type: Report from Study
  Country: DE (occurrence: DE)
  Receive Date: 20160810
  Receipt Date: 20170328
  Transmission Date: 20170428
  Serious: Yes (Hospitalization)
  Sender: FDA-Public Use
  Company Number: DE-OTSUKA-2016_019543

PATIENT
  Age: 79 Year
  Sex: Male
  Weight: 79 kg

DRUGS (9)
  1. ESOMEPRAZOLE [Concomitant]
     Active Substance: ESOMEPRAZOLE
     Indication: GASTROINTESTINAL DISORDER THERAPY
  2. ESOMEPRAZOLE [Concomitant]
     Active Substance: ESOMEPRAZOLE
     Indication: PROPHYLAXIS
     Dosage: 20 MG, 1 IN 1 DAY
     Route: 048
     Dates: start: 20160720
  3. MESALAZIN [Concomitant]
     Active Substance: MESALAMINE
     Indication: DIVERTICULITIS
     Dosage: 3000 MG, 1 IN 1 DAY
     Route: 048
     Dates: start: 20160715
  4. METRONIDAZOLE. [Concomitant]
     Active Substance: METRONIDAZOLE
     Indication: DIVERTICULITIS
     Dosage: 500 MG, 3 IN 1 DAY
     Route: 048
     Dates: start: 20160702
  5. DECITABINE. [Suspect]
     Active Substance: DECITABINE
     Indication: ACUTE MYELOID LEUKAEMIA
     Dosage: 42.42 MG
     Route: 042
     Dates: start: 20160704
  6. MESALAZIN [Concomitant]
     Active Substance: MESALAMINE
     Indication: ADVERSE EVENT
  7. *JNJ-56022473 [Suspect]
     Active Substance: INVESTIGATIONAL PRODUCT
     Indication: ACUTE MYELOID LEUKAEMIA
     Dosage: 810 MG
     Route: 042
     Dates: start: 20160711
  8. METRONIDAZOLE. [Concomitant]
     Active Substance: METRONIDAZOLE
     Indication: ADVERSE EVENT
     Dosage: 400 MG, 3 IN 1 DAY
     Route: 048
     Dates: start: 20160715
  9. CIPROBAY URO [Concomitant]
     Indication: DIVERTICULITIS
     Dosage: 500 MG, 2 IN 1 DAY
     Route: 048
     Dates: start: 20160715

REACTIONS (2)
  - Diverticular perforation [Recovered/Resolved]
  - Escherichia sepsis [Recovered/Resolved]

NARRATIVE: CASE EVENT DATE: 20160728
